FAERS Safety Report 20437260 (Version 2)
Quarter: 2022Q1

REPORT INFORMATION
  Report Type: Report from Study
  Country: CA (occurrence: None)
  Receive Date: 20220207
  Receipt Date: 20220224
  Transmission Date: 20220424
  Serious: Yes (Other)
  Sender: FDA-Public Use
  Company Number: CA-PFIZER INC-202200173967

PATIENT
  Age: 65 Year
  Sex: Male

DRUGS (5)
  1. METHOTREXATE [Suspect]
     Active Substance: METHOTREXATE
     Indication: Product used for unknown indication
     Route: 065
  2. HUMIRA [Suspect]
     Active Substance: ADALIMUMAB
     Indication: Rheumatoid arthritis
     Route: 058
  3. HUMIRA [Suspect]
     Active Substance: ADALIMUMAB
     Route: 058
  4. COVID-19 VACCINE [Concomitant]
     Indication: COVID-19 prophylaxis
     Route: 065
  5. COVID-19 VACCINE [Concomitant]
     Route: 065

REACTIONS (5)
  - Adrenal gland cancer [Recovered/Resolved]
  - Arthralgia [Recovered/Resolved]
  - Lung disorder [Recovered/Resolved]
  - Musculoskeletal stiffness [Recovered/Resolved]
  - Pain [Recovered/Resolved]
